FAERS Safety Report 9610703 (Version 2)
Quarter: 2013Q4

REPORT INFORMATION
  Report Type: Report from Study
  Country: JP (occurrence: JP)
  Receive Date: 20131009
  Receipt Date: 20131202
  Transmission Date: 20140711
  Serious: Yes (Death, Other)
  Sender: FDA-Public Use
  Company Number: JP-TAKEDA-TCI2013A05973

PATIENT
  Age: 65 Year
  Sex: Male

DRUGS (6)
  1. LANSOPRAZOLE [Suspect]
     Indication: PROPHYLAXIS AGAINST GASTROINTESTINAL ULCER
     Dosage: 15 MG, QD
     Route: 048
     Dates: start: 20110210, end: 20120112
  2. BAYASPIRIN [Concomitant]
     Indication: THROMBOSIS PROPHYLAXIS
     Dosage: 100 MG, 1DAYS
     Route: 048
  3. DIOVAN [Concomitant]
     Dosage: 160 MG, 1DAYS
     Route: 048
  4. AMLODIN [Concomitant]
     Dosage: 5 MG, 1DAYS
     Route: 048
  5. VESICARE [Concomitant]
     Dosage: 5 MG, 1DAYS
     Route: 048
  6. DIART [Concomitant]
     Dosage: 45 MG, 1DAYS
     Route: 048

REACTIONS (1)
  - Cardiac failure [Fatal]
